FAERS Safety Report 10610001 (Version 2)
Quarter: 2015Q2

REPORT INFORMATION
  Report Type: Spontaneous
  Country: US (occurrence: US)
  Receive Date: 20141126
  Receipt Date: 20150416
  Transmission Date: 20150821
  Serious: No
  Sender: FDA-Public Use
  Company Number: US-PFIZER INC-2014321610

PATIENT
  Sex: Female

DRUGS (2)
  1. NIACIN. [Suspect]
     Active Substance: NIACIN
     Dosage: UNK
     Dates: start: 2014
  2. SPIRONOLACTONE. [Suspect]
     Active Substance: SPIRONOLACTONE
     Dosage: 25 MG TABLET, 1/2 TABLET BY MOUTH ONCE DAILY
     Route: 048
     Dates: start: 2014

REACTIONS (1)
  - Drug hypersensitivity [Unknown]
